FAERS Safety Report 10333441 (Version 1)
Quarter: 2014Q3

REPORT INFORMATION
  Report Type: Spontaneous
  Country: US (occurrence: US)
  Receive Date: 20140722
  Receipt Date: 20140722
  Transmission Date: 20150326
  Serious: No
  Sender: FDA-Public Use
  Company Number: US-SA-2014SA014806

PATIENT
  Sex: Female

DRUGS (1)
  1. AMBIEN [Suspect]
     Active Substance: ZOLPIDEM TARTRATE
     Indication: PRODUCT USED FOR UNKNOWN INDICATION
     Route: 065

REACTIONS (6)
  - Disturbance in sexual arousal [Unknown]
  - Energy increased [Unknown]
  - Feeling of relaxation [Unknown]
  - Dreamy state [Unknown]
  - Fatigue [Unknown]
  - Sleep sex [Unknown]
